FAERS Safety Report 9218198 (Version 2)
Quarter: 2013Q2

REPORT INFORMATION
  Report Type: Report from Study
  Country: US (occurrence: US)
  Receive Date: 20130408
  Receipt Date: 20130510
  Transmission Date: 20140414
  Serious: Yes (Death, Other)
  Sender: FDA-Public Use
  Company Number: US-ABBOTT-13P-163-1073638-00

PATIENT
  Age: 80 Year
  Sex: Male
  Weight: 74 kg

DRUGS (18)
  1. CREON [Suspect]
     Indication: PANCREATIC DISORDER
     Dosage: PT TOOK 4 CAPS W/EACH MEAL
     Dates: start: 201207, end: 201303
  2. CREON [Suspect]
     Dosage: PT TOOK 1-2 CAP C/ SNACKS
     Dates: start: 201207, end: 201303
  3. ASPIRIN (E.C.) [Concomitant]
     Indication: PRODUCT USED FOR UNKNOWN INDICATION
     Route: 048
  4. ATENOLOL [Concomitant]
     Indication: PRODUCT USED FOR UNKNOWN INDICATION
     Route: 048
  5. DECADRON [Concomitant]
     Indication: PRODUCT USED FOR UNKNOWN INDICATION
     Route: 048
  6. FENTANYL [Concomitant]
     Indication: PRODUCT USED FOR UNKNOWN INDICATION
     Dosage: 50MCG/HR - 1 PATCH AS DIRECTED
     Route: 062
  7. LOPID [Concomitant]
     Indication: PRODUCT USED FOR UNKNOWN INDICATION
     Route: 048
  8. NORCO [Concomitant]
     Indication: PRODUCT USED FOR UNKNOWN INDICATION
     Dosage: 10/325MG - 1 Q4H PRN
     Route: 048
  9. MORPHINE SULFATE [Concomitant]
     Indication: PRODUCT USED FOR UNKNOWN INDICATION
     Dosage: 1 HOURLY IF NEEDED
     Route: 048
  10. DOXYCYCLINE MONOHYDRATE [Concomitant]
     Indication: PRODUCT USED FOR UNKNOWN INDICATION
     Route: 048
  11. LOSARTAN POTASSIUM [Concomitant]
     Indication: PRODUCT USED FOR UNKNOWN INDICATION
     Route: 048
  12. MVI [Concomitant]
     Indication: PRODUCT USED FOR UNKNOWN INDICATION
     Route: 048
  13. POMALIDOMIDE [Concomitant]
     Indication: PLASMA CELL MYELOMA
     Route: 048
     Dates: start: 20130320
  14. VITAMIN D2 [Concomitant]
     Indication: PRODUCT USED FOR UNKNOWN INDICATION
     Route: 048
  15. VITAMIN D3 [Concomitant]
     Indication: PRODUCT USED FOR UNKNOWN INDICATION
     Route: 048
  16. CARFILZOMIB [Concomitant]
     Indication: PLASMA CELL MYELOMA
     Dates: start: 20121102, end: 20130228
  17. CARFILZOMIB [Concomitant]
     Dosage: 5 CYCLES
     Dates: start: 20111230, end: 20120524
  18. TAMSOLIN [Concomitant]
     Indication: NOCTURIA
     Dates: start: 20100802

REACTIONS (6)
  - Plasma cell myeloma [Fatal]
  - Rotator cuff syndrome [Unknown]
  - Oedema peripheral [Unknown]
  - Haemoglobin decreased [Unknown]
  - Dental caries [Unknown]
  - Tooth loss [Unknown]
